FAERS Safety Report 6511118-1 (Version None)
Quarter: 2009Q4

REPORT INFORMATION
  Report Type: 
  Country: None (occurrence: None)
  Receive Date: 20091222
  Receipt Date: 20091211
  Transmission Date: 20100525
  Serious: Yes (Disabling)
  Sender: FDA-Public Use
  Company Number: IT-PFIZER INC-2009309519

PATIENT

DRUGS (1)
  1. DOXORUBICIN HCL [Suspect]

REACTIONS (1)
  - RESPIRATORY FAILURE [None]
